FAERS Safety Report 5343862-6 (Version None)
Quarter: 2007Q2

REPORT INFORMATION
  Report Type: 
  Country: None (occurrence: None)
  Receive Date: 20070531
  Receipt Date: 20070521
  Transmission Date: 20071010
  Serious: Yes (Hospitalization)
  Sender: FDA-Public Use
  Company Number: 2007SP009952

PATIENT
  Age: 70 Year
  Sex: Female

DRUGS (8)
  1. PROVENTIL-HFA [Suspect]
     Indication: ASTHMA
     Dosage: PO
     Route: 048
  2. PREDNISONE TAB [Concomitant]
  3. FLOVENT [Concomitant]
  4. XANAX [Concomitant]
  5. ALBUTEROL [Concomitant]
  6. SALMETEROL [Concomitant]
  7. ALBUTEROL [Concomitant]
  8. ALBUTEROL [Concomitant]

REACTIONS (4)
  - DRUG INEFFECTIVE [None]
  - HYPERSENSITIVITY [None]
  - JOINT SWELLING [None]
  - WHEEZING [None]
